FAERS Safety Report 5679579-8 (Version None)
Quarter: 2008Q1

REPORT INFORMATION
  Report Type: 
  Country: None (occurrence: None)
  Receive Date: 20080321
  Receipt Date: 20080314
  Transmission Date: 20080703
  Serious: Yes (Hospitalization)
  Sender: FDA-Public Use
  Company Number: 2007JP005068

PATIENT
  Age: 64 Year
  Sex: Male
  Weight: 63 kg

DRUGS (4)
  1. VESICARE [Suspect]
     Indication: POLLAKIURIA
     Dosage: 5 MG, UID/QD, ORAL; 5 MG, BID, ORAL
     Route: 048
     Dates: start: 20070912, end: 20071002
  2. VESICARE [Suspect]
     Indication: POLLAKIURIA
     Dosage: 5 MG, UID/QD, ORAL; 5 MG, BID, ORAL
     Route: 048
     Dates: start: 20071003, end: 20071023
  3. LOXONIN(LOXOPROFEN SODIUM) TABLET [Suspect]
     Dosage: 60 MG, PRN, ORAL
     Route: 048
     Dates: start: 20071019, end: 20071023
  4. MUCOSTA (REBAMIPIDE) [Concomitant]

REACTIONS (1)
  - INTERSTITIAL LUNG DISEASE [None]
